FAERS Safety Report 22616111 (Version 3)
Quarter: 2025Q1

REPORT INFORMATION
  Report Type: Spontaneous
  Country: CA (occurrence: CA)
  Receive Date: 20230619
  Receipt Date: 20250212
  Transmission Date: 20250409
  Serious: Yes (Hospitalization, Other)
  Sender: HIKMA
  Company Number: CA-Hikma Pharmaceuticals USA Inc.-CA-H14001-23-02030

PATIENT
  Age: 75 Year
  Sex: Male

DRUGS (82)
  1. AMIODARONE HYDROCHLORIDE [Suspect]
     Active Substance: AMIODARONE HYDROCHLORIDE
     Dosage: 10 MILLIGRAM, QD
     Route: 048
  2. AMIODARONE HYDROCHLORIDE [Suspect]
     Active Substance: AMIODARONE HYDROCHLORIDE
     Indication: Atrial fibrillation
     Dosage: 200 MILLIGRAM, QD
     Route: 048
  3. AMIODARONE HYDROCHLORIDE [Suspect]
     Active Substance: AMIODARONE HYDROCHLORIDE
     Route: 065
  4. AMLODIPINE [Suspect]
     Active Substance: AMLODIPINE BESYLATE
     Dosage: 1 MILLIGRAM, QD
     Route: 048
  5. AMLODIPINE [Suspect]
     Active Substance: AMLODIPINE BESYLATE
     Indication: Cardiac failure
     Dosage: 10 MILLIGRAM, QD
     Route: 048
  6. AMLODIPINE [Suspect]
     Active Substance: AMLODIPINE BESYLATE
     Route: 065
  7. AMLODIPINE BESYLATE [Suspect]
     Active Substance: AMLODIPINE BESYLATE
     Dosage: 1 MILLIGRAM, QD
     Route: 048
  8. AMLODIPINE BESYLATE [Suspect]
     Active Substance: AMLODIPINE BESYLATE
     Indication: Cardiac failure
     Dosage: 10 MILLIGRAM, QD
     Route: 048
  9. AMLODIPINE BESYLATE [Suspect]
     Active Substance: AMLODIPINE BESYLATE
     Route: 065
  10. AMLODIPINE MESYLATE [Suspect]
     Active Substance: AMLODIPINE MESYLATE
     Indication: Cardiac failure
     Route: 065
  11. AMLODIPINE MESYLATE [Suspect]
     Active Substance: AMLODIPINE MESYLATE
     Dosage: 1 MILLIGRAM, QD
     Route: 048
  12. AMLODIPINE MESYLATE [Suspect]
     Active Substance: AMLODIPINE MESYLATE
     Dosage: 10 MILLIGRAM, QD
     Route: 048
  13. AMLODIPINE MESYLATE [Suspect]
     Active Substance: AMLODIPINE MESYLATE
     Dosage: 10 MILLIGRAM, QD
     Route: 048
  14. CANDESARTAN [Suspect]
     Active Substance: CANDESARTAN
     Dosage: 2.5 MILLIGRAM, QD
     Route: 048
  15. CANDESARTAN [Suspect]
     Active Substance: CANDESARTAN
     Indication: Cardiac failure
     Dosage: 4 MILLIGRAM, QD
     Route: 048
  16. CANDESARTAN [Suspect]
     Active Substance: CANDESARTAN
     Route: 065
  17. CANDESARTAN [Suspect]
     Active Substance: CANDESARTAN
     Dosage: 1 MILLIGRAM, QD
     Route: 048
  18. CANDESARTAN CILEXETIL [Suspect]
     Active Substance: CANDESARTAN CILEXETIL
     Indication: Cardiac failure
     Route: 048
  19. CANDESARTAN CILEXETIL [Suspect]
     Active Substance: CANDESARTAN CILEXETIL
     Dosage: 2.5 MILLIGRAM, QD
     Route: 048
  20. CANDESARTAN CILEXETIL [Suspect]
     Active Substance: CANDESARTAN CILEXETIL
     Dosage: 4 MILLIGRAM, QD
     Route: 048
  21. CANDESARTAN CILEXETIL [Suspect]
     Active Substance: CANDESARTAN CILEXETIL
     Route: 065
  22. CANDESARTAN CILEXETIL [Suspect]
     Active Substance: CANDESARTAN CILEXETIL
     Dosage: 3 MILLIGRAM, QD
     Route: 048
  23. CARDIZEM CD [Suspect]
     Active Substance: DILTIAZEM HYDROCHLORIDE
     Dosage: 2.5 MILLIGRAM, QD
     Route: 048
  24. CARDIZEM CD [Suspect]
     Active Substance: DILTIAZEM HYDROCHLORIDE
     Indication: Angina pectoris
     Dosage: 200 MILLIGRAM, QD
     Route: 048
  25. CARDIZEM CD [Suspect]
     Active Substance: DILTIAZEM HYDROCHLORIDE
     Dosage: 3 MILLIGRAM, QD
     Route: 048
  26. DILTIAZEM [Suspect]
     Active Substance: DILTIAZEM
     Dosage: 2.5 MILLIGRAM, QD
     Route: 048
  27. DILTIAZEM [Suspect]
     Active Substance: DILTIAZEM
     Indication: Angina pectoris
     Dosage: 200 MILLIGRAM, QD
     Route: 048
  28. DILTIAZEM [Suspect]
     Active Substance: DILTIAZEM
     Dosage: 60 MILLIGRAM, QD
     Route: 065
  29. DILTIAZEM HYDROCHLORIDE [Suspect]
     Active Substance: DILTIAZEM HYDROCHLORIDE
     Indication: Angina pectoris
     Dosage: 2.5 MILLIGRAM, QD
     Route: 048
  30. DILTIAZEM HYDROCHLORIDE [Suspect]
     Active Substance: DILTIAZEM HYDROCHLORIDE
     Dosage: 2.5 MILLIGRAM, QD
     Route: 048
  31. DILTIAZEM HYDROCHLORIDE [Suspect]
     Active Substance: DILTIAZEM HYDROCHLORIDE
     Dosage: 200 MILLIGRAM, QD
     Route: 048
  32. DILTIAZEM HYDROCHLORIDE [Suspect]
     Active Substance: DILTIAZEM HYDROCHLORIDE
     Dosage: 200 MILLIGRAM, QD
     Route: 048
  33. DILTIAZEM HYDROCHLORIDE [Suspect]
     Active Substance: DILTIAZEM HYDROCHLORIDE
     Dosage: 60 MILLIGRAM, QD
     Route: 048
  34. DILTIAZEM HYDROCHLORIDE [Suspect]
     Active Substance: DILTIAZEM HYDROCHLORIDE
     Dosage: 3 MILLIGRAM, QD
     Route: 048
  35. EMPAGLIFLOZIN [Suspect]
     Active Substance: EMPAGLIFLOZIN
     Indication: Product used for unknown indication
     Route: 065
  36. TAMSULOSIN HYDROCHLORIDE [Suspect]
     Active Substance: TAMSULOSIN HYDROCHLORIDE
     Indication: Benign prostatic hyperplasia
     Dosage: .4 MILLIGRAM, QD
     Route: 048
  37. TAMSULOSIN HYDROCHLORIDE [Suspect]
     Active Substance: TAMSULOSIN HYDROCHLORIDE
     Dosage: .4 MILLIGRAM, QD
     Route: 048
  38. TAMSULOSIN HYDROCHLORIDE [Suspect]
     Active Substance: TAMSULOSIN HYDROCHLORIDE
     Indication: Prostatomegaly
     Route: 065
  39. FUROSEMIDE [Suspect]
     Active Substance: FUROSEMIDE
     Dosage: 20 MILLIGRAM, QD
     Route: 048
  40. FUROSEMIDE [Suspect]
     Active Substance: FUROSEMIDE
     Dosage: 20 MILLIGRAM, QD
     Route: 065
  41. FUROSEMIDE [Suspect]
     Active Substance: FUROSEMIDE
     Dosage: 200 MILLIGRAM, QD
     Route: 048
  42. FUROSEMIDE [Suspect]
     Active Substance: FUROSEMIDE
     Indication: Diuretic therapy
     Route: 065
  43. FUROSEMIDE [Suspect]
     Active Substance: FUROSEMIDE
     Indication: Diuretic therapy
     Dosage: 20 MILLIGRAM, QD
     Route: 048
  44. FUROSEMIDE [Suspect]
     Active Substance: FUROSEMIDE
     Dosage: 200 MILLIGRAM, QD
     Route: 048
  45. NITROGLYCERIN [Suspect]
     Active Substance: NITROGLYCERIN
     Indication: Angina pectoris
     Dosage: 1 MILLIGRAM, QD
     Route: 061
  46. JARDIANCE [Suspect]
     Active Substance: EMPAGLIFLOZIN
     Dosage: 20 MILLIGRAM, QD
     Route: 048
  47. JARDIANCE [Suspect]
     Active Substance: EMPAGLIFLOZIN
     Route: 048
  48. JARDIANCE [Suspect]
     Active Substance: EMPAGLIFLOZIN
     Indication: Cardiac failure
     Route: 065
  49. METOPROLOL [Suspect]
     Active Substance: METOPROLOL
     Dosage: 200 MILLIGRAM, QD
     Route: 048
  50. METOPROLOL [Suspect]
     Active Substance: METOPROLOL
     Indication: Cardiac failure
     Dosage: 200 MILLIGRAM, QD
     Route: 065
  51. METOPROLOL [Suspect]
     Active Substance: METOPROLOL
     Route: 048
  52. METOPROLOL FUMARATE [Suspect]
     Active Substance: METOPROLOL FUMARATE
     Indication: Cardiac failure
     Dosage: 200 MILLIGRAM, QD
     Route: 048
  53. METOPROLOL FUMARATE [Suspect]
     Active Substance: METOPROLOL FUMARATE
     Dosage: 4 MILLIGRAM, QD
     Route: 048
  54. METOPROLOL TARTRATE [Suspect]
     Active Substance: METOPROLOL TARTRATE
     Dosage: 200 MILLIGRAM, QD
     Route: 048
  55. METOPROLOL TARTRATE [Suspect]
     Active Substance: METOPROLOL TARTRATE
     Dosage: 200 MILLIGRAM, QD
     Route: 065
  56. METOPROLOL TARTRATE [Suspect]
     Active Substance: METOPROLOL TARTRATE
     Indication: Cardiac failure
     Route: 048
  57. METOPROLOL TARTRATE [Suspect]
     Active Substance: METOPROLOL TARTRATE
     Route: 065
  58. MIRAPEX [Suspect]
     Active Substance: PRAMIPEXOLE DIHYDROCHLORIDE
     Indication: Restless legs syndrome
     Route: 048
  59. MIRAPEX [Suspect]
     Active Substance: PRAMIPEXOLE DIHYDROCHLORIDE
     Route: 065
  60. MORNIFLUMATE [Suspect]
     Active Substance: MORNIFLUMATE
     Indication: Benign prostatic hyperplasia
     Dosage: 0.4 MILLIGRAM, QD
     Route: 048
  61. NITROGLYCERIN [Suspect]
     Active Substance: NITROGLYCERIN
     Indication: Angina pectoris
     Dosage: 1 MILLIGRAM, QD
     Route: 061
  62. PRAMIPEXOLE [Suspect]
     Active Substance: PRAMIPEXOLE
     Indication: Prostatomegaly
     Dosage: 4 MILLIGRAM, QD
     Route: 048
  63. PRAMIPEXOLE [Suspect]
     Active Substance: PRAMIPEXOLE
     Indication: Restless legs syndrome
     Route: 048
  64. PRAMIPEXOLE [Suspect]
     Active Substance: PRAMIPEXOLE
     Route: 048
  65. PRAMIPEXOLE [Suspect]
     Active Substance: PRAMIPEXOLE
     Dosage: 0.4 MILLIGRAM, QD
     Route: 048
  66. PRAMIPEXOLE DIHYDROCHLORIDE [Suspect]
     Active Substance: PRAMIPEXOLE DIHYDROCHLORIDE
     Indication: Prostatomegaly
     Route: 048
  67. PRAMIPEXOLE DIHYDROCHLORIDE [Suspect]
     Active Substance: PRAMIPEXOLE DIHYDROCHLORIDE
     Indication: Restless legs syndrome
     Route: 048
  68. TAMSULOSIN [Suspect]
     Active Substance: TAMSULOSIN
     Indication: Prostatomegaly
     Dosage: 0.4 MILLIGRAM, QD
     Route: 048
  69. TAMSULOSIN [Suspect]
     Active Substance: TAMSULOSIN
     Indication: Benign prostatic hyperplasia
  70. TAMSULOSIN [Suspect]
     Active Substance: TAMSULOSIN
     Indication: Restless legs syndrome
  71. TAMSULOSIN HYDROCHLORIDE [Suspect]
     Active Substance: TAMSULOSIN HYDROCHLORIDE
     Indication: Restless legs syndrome
     Dosage: .4 MILLIGRAM, QD
     Route: 048
  72. TAMSULOSIN HYDROCHLORIDE [Suspect]
     Active Substance: TAMSULOSIN HYDROCHLORIDE
     Indication: Prostatomegaly
     Route: 065
  73. BICALUTAMIDE [Concomitant]
     Active Substance: BICALUTAMIDE
     Indication: Neoplasm malignant
     Dosage: 50 MILLIGRAM, QD
     Route: 048
  74. CLOPIDOGREL [Concomitant]
     Active Substance: CLOPIDOGREL BISULFATE
     Indication: Cardiac failure
     Dosage: 75 MILLIGRAM, QD
     Route: 048
  75. EZETIMIBE [Concomitant]
     Active Substance: EZETIMIBE
     Indication: Dyslipidaemia
     Dosage: 10 MILLIGRAM, QD
     Route: 048
  76. RIVAROXABAN [Concomitant]
     Active Substance: RIVAROXABAN
     Indication: Coronary artery disease
     Dosage: 15 MILLIGRAM, QD
     Route: 048
  77. ROSUVASTATIN CALCIUM [Concomitant]
     Active Substance: ROSUVASTATIN CALCIUM
     Dosage: 20 MILLIGRAM, QD
     Route: 048
  78. ROSUVASTATIN CALCIUM [Concomitant]
     Active Substance: ROSUVASTATIN CALCIUM
     Route: 048
  79. ROSUVASTATIN CALCIUM [Concomitant]
     Active Substance: ROSUVASTATIN CALCIUM
     Indication: Dyslipidaemia
     Route: 065
  80. ROSUVASTATIN CALCIUM [Concomitant]
     Active Substance: ROSUVASTATIN CALCIUM
     Dosage: 15 MILLIGRAM, QD
     Route: 065
  81. TRAZODONE [Concomitant]
     Active Substance: TRAZODONE HYDROCHLORIDE
     Indication: Antidepressant therapy
     Dosage: 50 MILLIGRAM, QD
     Route: 048
  82. TRAZODONE [Concomitant]
     Active Substance: TRAZODONE HYDROCHLORIDE
     Dosage: 50 MILLIGRAM, QD
     Route: 065

REACTIONS (5)
  - Adrenal insufficiency [Not Recovered/Not Resolved]
  - Hyperthyroidism [Not Recovered/Not Resolved]
  - Troponin increased [Not Recovered/Not Resolved]
  - Hypotension [Recovered/Resolved with Sequelae]
  - Off label use [Not Recovered/Not Resolved]
